FAERS Safety Report 4459582-6 (Version None)
Quarter: 2004Q3

REPORT INFORMATION
  Report Type: 
  Country: None (occurrence: None)
  Receive Date: 20040910
  Receipt Date: 20040624
  Transmission Date: 20050211
  Serious: Yes (Other)
  Sender: FDA-Public Use
  Company Number: 2004218493US

PATIENT
  Sex: Female

DRUGS (3)
  1. BEXTRA [Suspect]
     Indication: LIMB INJURY
  2. VICODIN [Concomitant]
  3. LIDODERM [Concomitant]

REACTIONS (1)
  - CONVULSION [None]
